FAERS Safety Report 9333773 (Version 1)
Quarter: 2013Q2

REPORT INFORMATION
  Report Type: Spontaneous
  Country: US (occurrence: US)
  Receive Date: 20130606
  Receipt Date: 20130606
  Transmission Date: 20140414
  Serious: No
  Sender: FDA-Public Use
  Company Number: US-AMGEN-USASP2013002495

PATIENT
  Age: 59 Year
  Sex: Female

DRUGS (5)
  1. PROLIA [Suspect]
     Indication: SENILE OSTEOPOROSIS
     Dosage: UNK
     Dates: start: 20120111
  2. NEXIUM                             /01479302/ [Concomitant]
  3. CALCIUM [Concomitant]
  4. LIBRAX                             /00033301/ [Concomitant]
     Indication: IRRITABLE BOWEL SYNDROME
  5. SERAX                              /00040901/ [Concomitant]
     Indication: ANXIETY

REACTIONS (2)
  - Cyst [Unknown]
  - Exostosis [Unknown]
